FAERS Safety Report 20058448 (Version 8)
Quarter: 2022Q1

REPORT INFORMATION
  Report Type: Report from Study
  Country: CH (occurrence: CH)
  Receive Date: 20211111
  Receipt Date: 20220315
  Transmission Date: 20220423
  Serious: Yes (Hospitalization, Other)
  Sender: FDA-Public Use
  Company Number: CH-ABBVIE-21K-151-4152283-00

PATIENT
  Sex: Male

DRUGS (16)
  1. HUMIRA [Suspect]
     Active Substance: ADALIMUMAB
     Indication: Crohn^s disease
     Route: 058
     Dates: start: 201007, end: 201404
  2. HUMIRA [Suspect]
     Active Substance: ADALIMUMAB
     Indication: Rheumatoid arthritis
     Route: 058
     Dates: start: 2021, end: 20211220
  3. REMICADE [Suspect]
     Active Substance: INFLIXIMAB
     Indication: Crohn^s disease
     Route: 042
     Dates: start: 200904, end: 200912
  4. REMICADE [Suspect]
     Active Substance: INFLIXIMAB
     Route: 042
     Dates: start: 201405, end: 201506
  5. REMICADE [Suspect]
     Active Substance: INFLIXIMAB
     Route: 065
     Dates: start: 2017, end: 2017
  6. ENTYVIO [Suspect]
     Active Substance: VEDOLIZUMAB
     Indication: Crohn^s disease
     Route: 065
     Dates: start: 201507, end: 201607
  7. ENTYVIO [Suspect]
     Active Substance: VEDOLIZUMAB
     Route: 065
     Dates: start: 201906, end: 201910
  8. METHOTREXATE [Suspect]
     Active Substance: METHOTREXATE
     Indication: Crohn^s disease
     Route: 065
     Dates: start: 201906, end: 201910
  9. STELARA [Suspect]
     Active Substance: USTEKINUMAB
     Indication: Crohn^s disease
     Route: 065
     Dates: start: 2016, end: 201703
  10. RINVOQ [Suspect]
     Active Substance: UPADACITINIB
     Indication: Crohn^s disease
     Route: 048
     Dates: start: 202009, end: 202106
  11. SKYRIZI [Suspect]
     Active Substance: RISANKIZUMAB-RZAA
     Indication: Crohn^s disease
     Route: 042
     Dates: start: 202112, end: 202112
  12. SKYRIZI [Suspect]
     Active Substance: RISANKIZUMAB-RZAA
     Route: 058
     Dates: start: 202112
  13. SOLU-MEDROL [Concomitant]
     Active Substance: METHYLPREDNISOLONE SODIUM SUCCINATE
     Indication: Product used for unknown indication
     Dates: start: 20210709, end: 20210714
  14. SARS-COV-2 VACCINE [Concomitant]
     Indication: COVID-19 immunisation
     Dosage: 1ST DOSE
     Route: 030
  15. SARS-COV-2 VACCINE [Concomitant]
     Dosage: 2ND DOSE
     Route: 030
  16. SARS-COV-2 VACCINE [Concomitant]
     Dosage: BOOSTER DOSE
     Route: 030

REACTIONS (32)
  - Mechanical ileus [Recovered/Resolved]
  - Pancreatic cyst [Unknown]
  - Intestinal perforation [Recovered/Resolved]
  - Intestinal perforation [Recovered/Resolved]
  - Abdominal abscess [Recovered/Resolved]
  - Crohn^s disease [Not Recovered/Not Resolved]
  - Spinal compression fracture [Unknown]
  - Pain [Unknown]
  - Somatic symptom disorder [Unknown]
  - Osteoarthritis [Unknown]
  - Dysaesthesia [Unknown]
  - Osteoporosis [Unknown]
  - Inflammation [Unknown]
  - Depression [Unknown]
  - Drug ineffective [Recovered/Resolved]
  - Serum sickness [Recovered/Resolved]
  - Drug ineffective [Recovered/Resolved]
  - Drug ineffective [Recovered/Resolved]
  - Drug ineffective [Not Recovered/Not Resolved]
  - Drug ineffective [Recovered/Resolved]
  - Drug ineffective [Recovered/Resolved]
  - Joint effusion [Unknown]
  - Enthesopathy [Unknown]
  - Erythema nodosum [Unknown]
  - Peripheral spondyloarthritis [Recovered/Resolved]
  - Skin disorder [Unknown]
  - Arthralgia [Not Recovered/Not Resolved]
  - Off label use [Unknown]
  - Drug ineffective [Unknown]
  - Insomnia [Unknown]
  - Polyarthritis [Unknown]
  - Therapeutic response unexpected [Unknown]

NARRATIVE: CASE EVENT DATE: 20160101
